FAERS Safety Report 20437672 (Version 1)
Quarter: 2022Q1

REPORT INFORMATION
  Report Type: Spontaneous
  Country: US (occurrence: None)
  Receive Date: 20220204
  Receipt Date: 20220204
  Transmission Date: 20220423
  Serious: Yes (Hospitalization)
  Sender: FDA-Public Use
  Company Number: None

PATIENT
  Age: 66 Year
  Sex: Female

DRUGS (12)
  1. SOTROVIMAB [Suspect]
     Active Substance: SOTROVIMAB
     Indication: COVID-19
     Dosage: OTHER FREQUENCY : ONCE;?
     Route: 042
     Dates: start: 20220128, end: 20220128
  2. albuterol HFA 90 mcg/actuation inhaler [Concomitant]
  3. ascorbic acid, vitamin C, (VITAMIN C) 100 mg tablet [Concomitant]
  4. busPIRone (BUSPAR) 15 mg tablet [Concomitant]
  5. cholecalciferol (VITAMIN D3) 1,000 unit (25 mcg) tablet [Concomitant]
  6. citalopram (CeleXA) 20 mg tablet [Concomitant]
  7. hydroCHLOROthiazide (HYDRODIURIL) 12.5 mg tablet [Concomitant]
  8. pantoprazole (PROTONIX) 20 mg EC tablet [Concomitant]
  9. PARoxetine (PAXIL) 20 mg tablet [Concomitant]
  10. simvastatin (ZOCOR) 20 mg tablet [Concomitant]
  11. zinc gluconate 50 mg tablet [Concomitant]
  12. fluticasone propionate (FLONASE) 50 mcg/actuation nasal spray [Concomitant]

REACTIONS (3)
  - COVID-19 pneumonia [None]
  - Emphysema [None]
  - Respiratory failure [None]

NARRATIVE: CASE EVENT DATE: 20220130
